FAERS Safety Report 4867907-2 (Version None)
Quarter: 2005Q4

REPORT INFORMATION
  Report Type: 
  Country: None (occurrence: None)
  Receive Date: 20051223
  Receipt Date: 20051205
  Transmission Date: 20060501
  Serious: Yes (Life-Threatening)
  Sender: FDA-Public Use
  Company Number: JP200511001782

PATIENT
  Age: 74 Year
  Sex: Male
  Weight: 54 kg

DRUGS (14)
  1. GEMZAR [Suspect]
     Indication: PANCREATIC CARCINOMA STAGE IV
     Dosage: 1400 MG, OTHER, INTRAVENOUS
     Route: 042
     Dates: start: 20051017, end: 20051114
  2. SEROTONE (AZASETRON HYDROCHLORIDE) [Concomitant]
  3. DECADRON [Concomitant]
  4. AMLODIPINE BESYLATE [Concomitant]
  5. BAYMYCARD (NISOLDIPINE) [Concomitant]
  6. WARFARIN (WARFARIN) [Concomitant]
  7. TICLOPIDINE HCL [Concomitant]
  8. LANSOPRAZOLE [Concomitant]
  9. LASIX [Concomitant]
  10. SUNRYTHM (PILSICAINIDE HYDROCHLORIDE) [Concomitant]
  11. MEXITIL [Concomitant]
  12. DIGOXIN [Concomitant]
  13. GASMOTIN (MOSAPRIDE CITRATE) [Concomitant]
  14. ALENDRONATE SODIUM [Concomitant]

REACTIONS (2)
  - NO REACTION ON PREVIOUS EXPOSURE TO DRUG [None]
  - PNEUMONITIS [None]
